FAERS Safety Report 17407812 (Version 1)
Quarter: 2020Q1

REPORT INFORMATION
  Report Type: Spontaneous
  Country: US (occurrence: US)
  Receive Date: 20200128
  Receipt Date: 20200128
  Transmission Date: 20200409
  Serious: No
  Sender: FDA-Public Use
  Company Number: None

PATIENT
  Age: 44 Year
  Sex: Female

DRUGS (4)
  1. TADALAFIL 20MG TAB [Suspect]
     Active Substance: TADALAFIL
     Route: 048
     Dates: start: 201801
  2. TADALAFIL 20MG TAB [Suspect]
     Active Substance: TADALAFIL
     Route: 048
     Dates: start: 201801
  3. LETAIRIS [Concomitant]
     Active Substance: AMBRISENTAN
  4. REMODULIN [Concomitant]
     Active Substance: TREPROSTINIL

REACTIONS (1)
  - Headache [None]

NARRATIVE: CASE EVENT DATE: 20200128
